FAERS Safety Report 8597266 (Version 4)
Quarter: 2014Q1

REPORT INFORMATION
  Report Type: Spontaneous
  Country: US (occurrence: US)
  Receive Date: 20120605
  Receipt Date: 20140124
  Transmission Date: 20141002
  Serious: Yes (Hospitalization, Disabling, Other)
  Sender: FDA-Public Use
  Company Number: US-ASTRAZENECA-2012SE34858

PATIENT
  Age: 18400 Day
  Sex: Female

DRUGS (20)
  1. NEXIUM [Suspect]
     Indication: BARRETT^S OESOPHAGUS
     Route: 048
     Dates: start: 20061109
  2. NEXIUM [Suspect]
     Indication: BARRETT^S OESOPHAGUS
     Route: 048
     Dates: start: 20100304
  3. PROTONIX/ PANTOPRAZOLE [Concomitant]
     Route: 048
  4. ZANTAC [Concomitant]
  5. PEPCID [Concomitant]
  6. PREMARIN [Concomitant]
     Route: 048
     Dates: start: 20081014
  7. SINGULAIR [Concomitant]
     Route: 048
     Dates: start: 20081014
  8. METHOCARBAMOL [Concomitant]
     Route: 048
  9. PROMETHAZINE [Concomitant]
     Indication: NAUSEA
     Dosage: TAKE 1/2 TABLET EVERY FOUR HOURS
     Route: 048
     Dates: start: 20081112
  10. PROMETHAZINE [Concomitant]
     Indication: VOMITING
     Dosage: TAKE 1/2 TABLET EVERY FOUR HOURS
     Route: 048
     Dates: start: 20081112
  11. OMEPRAZOLE [Concomitant]
     Route: 048
     Dates: start: 20090528
  12. SODIUM BICARBONATE [Concomitant]
     Route: 048
     Dates: start: 20090720
  13. TRAMADOL HCL [Concomitant]
     Dosage: EVERY 6 HOURS AS NEEDED
     Route: 048
     Dates: start: 20091209
  14. FOLIC ACID [Concomitant]
     Dates: start: 20091005
  15. GABAPENTIN [Concomitant]
  16. ZYPREXA [Concomitant]
     Dates: start: 20061204
  17. ZELNORM [Concomitant]
     Dates: start: 20061204
  18. CLONAZEPAM [Concomitant]
     Dates: start: 20061204
  19. SEROQUEL [Concomitant]
     Dates: start: 20070222
  20. AMOXICILLIN [Concomitant]
     Dates: start: 20071025

REACTIONS (12)
  - Spinal compression fracture [Unknown]
  - Spinal fracture [Unknown]
  - Fall [Unknown]
  - Mental disability [Unknown]
  - Osteoporosis [Unknown]
  - Calcium deficiency [Unknown]
  - Arthritis [Unknown]
  - Back disorder [Unknown]
  - Liver disorder [Unknown]
  - Intervertebral disc degeneration [Unknown]
  - Intervertebral disc protrusion [Unknown]
  - Depression [Unknown]
